FAERS Safety Report 8998002 (Version 1)
Quarter: 2013Q1

REPORT INFORMATION
  Report Type: Report from Study
  Country: CA (occurrence: CA)
  Receive Date: 20130104
  Receipt Date: 20130104
  Transmission Date: 20140127
  Serious: Yes (Death)
  Sender: FDA-Public Use
  Company Number: CA-ROCHE-1176677

PATIENT
  Sex: Male
  Weight: 101.6 kg

DRUGS (16)
  1. RITUXIMAB [Suspect]
     Indication: RHEUMATOID ARTHRITIS
     Route: 042
     Dates: start: 20110728, end: 20120531
  2. FUROSEMIDE [Concomitant]
  3. ASA [Concomitant]
  4. IRON [Concomitant]
  5. ATORVASTATIN [Concomitant]
  6. METFORMIN [Concomitant]
  7. PREDNISONE [Concomitant]
  8. SLOW-K [Concomitant]
  9. PANTOPRAZOLE [Concomitant]
  10. OXYCONTIN [Concomitant]
  11. LYRICA [Concomitant]
  12. RAMIPRIL [Concomitant]
  13. INSULIN [Concomitant]
  14. DIPHENHYDRAMINE HCL [Concomitant]
     Indication: PREMEDICATION
     Route: 048
     Dates: start: 20110728, end: 20120531
  15. ACETAMINOPHEN [Concomitant]
     Indication: PREMEDICATION
     Route: 048
     Dates: start: 20110728, end: 20120531
  16. METHYLPREDNISOLONE [Concomitant]
     Indication: PREMEDICATION
     Route: 042
     Dates: start: 20110728, end: 20120531

REACTIONS (1)
  - Death [Fatal]
